FAERS Safety Report 16405952 (Version 1)
Quarter: 2019Q2

REPORT INFORMATION
  Report Type: Spontaneous
  Country: US (occurrence: US)
  Receive Date: 20190607
  Receipt Date: 20190607
  Transmission Date: 20190711
  Serious: Yes (Hospitalization)
  Sender: FDA-Public Use
  Company Number: US-ASTRAZENECA-2019SE83674

PATIENT
  Age: 708 Month
  Sex: Male
  Weight: 80.7 kg

DRUGS (3)
  1. SYMBICORT [Suspect]
     Active Substance: BUDESONIDE\FORMOTEROL FUMARATE DIHYDRATE
     Indication: PNEUMONIA
     Dosage: 160/4.5 MCG, TWO PUFFS TWICE A DAY
     Route: 055
     Dates: start: 201705
  2. SYMBICORT [Suspect]
     Active Substance: BUDESONIDE\FORMOTEROL FUMARATE DIHYDRATE
     Indication: PYREXIA
     Dosage: 160/4.5 MCG, TWO PUFFS TWICE A DAY
     Route: 055
     Dates: start: 201705
  3. SYMBICORT [Suspect]
     Active Substance: BUDESONIDE\FORMOTEROL FUMARATE DIHYDRATE
     Indication: COUGH
     Dosage: 160/4.5 MCG, TWO PUFFS TWICE A DAY
     Route: 055
     Dates: start: 201705

REACTIONS (2)
  - Off label use of device [Not Recovered/Not Resolved]
  - Cough [Recovered/Resolved with Sequelae]

NARRATIVE: CASE EVENT DATE: 201806
